APPROVED DRUG PRODUCT: MEMANTINE HYDROCHLORIDE
Active Ingredient: MEMANTINE HYDROCHLORIDE
Strength: 2MG/ML
Dosage Form/Route: SOLUTION;ORAL
Application: A209955 | Product #001 | TE Code: AA
Applicant: APOTEX INC
Approved: Feb 9, 2018 | RLD: No | RS: No | Type: RX